FAERS Safety Report 10895890 (Version 2)
Quarter: 2015Q1

REPORT INFORMATION
  Report Type: Spontaneous
  Country: JP (occurrence: JP)
  Receive Date: 20150307
  Receipt Date: 20150324
  Transmission Date: 20150721
  Serious: Yes (Hospitalization, Other)
  Sender: FDA-Public Use
  Company Number: JP-AMGEN-JPNSP2015020516

PATIENT
  Age: 69 Year
  Sex: Female

DRUGS (8)
  1. MEDROL [Concomitant]
     Active Substance: METHYLPREDNISOLONE
     Dosage: 3 MG, 1X/DAY
  2. CRESTOR [Concomitant]
     Active Substance: ROSUVASTATIN CALCIUM
     Indication: HYPERLIPIDAEMIA
     Dosage: 2.5 MG, 1X/DAY
  3. ENBREL [Suspect]
     Active Substance: ETANERCEPT
     Indication: RHEUMATOID ARTHRITIS
     Dosage: 25 MG, SINGLE
     Route: 058
     Dates: start: 20150219
  4. EBASTEL [Concomitant]
     Active Substance: EBASTINE
     Indication: RHINITIS ALLERGIC
     Dosage: 10 MG, 1X/DAY
  5. BREDININ [Concomitant]
     Active Substance: MIZORIBINE
     Indication: RHEUMATOID ARTHRITIS
     Dosage: 50 MG, 1X/DAY
  6. LANSOPRAZOLE. [Concomitant]
     Active Substance: LANSOPRAZOLE
     Indication: GASTRITIS
     Dosage: 15 MG, 1X/DAY
  7. LENDORMIN [Concomitant]
     Active Substance: BROTIZOLAM
     Dosage: UNK
  8. MEDROL [Concomitant]
     Active Substance: METHYLPREDNISOLONE
     Indication: RHEUMATOID ARTHRITIS
     Dosage: 2 MG, QD

REACTIONS (2)
  - Butterfly rash [Recovering/Resolving]
  - Erythema [Recovering/Resolving]

NARRATIVE: CASE EVENT DATE: 20150221
